FAERS Safety Report 6862288-7 (Version None)
Quarter: 2010Q3

REPORT INFORMATION
  Report Type: 
  Country: None (occurrence: None)
  Receive Date: 20100721
  Receipt Date: 20100716
  Transmission Date: 20110219
  Serious: Yes (Death, Hospitalization, Other)
  Sender: FDA-Public Use
  Company Number: FR-BRISTOL-MYERS SQUIBB COMPANY-15198104

PATIENT
  Age: 83 Year
  Sex: Male

DRUGS (6)
  1. COUMADIN [Suspect]
     Indication: ATRIAL FIBRILLATION
     Dosage: MORE THAN 1 YR
     Dates: end: 20091030
  2. CORDARONE [Concomitant]
     Dosage: 5 OUT OF 7 DAYS
  3. ZOLOFT [Concomitant]
     Indication: DEPRESSION
  4. DOLIPRANE [Concomitant]
     Indication: BONE PAIN
     Dates: start: 20091001
  5. DURAGESIC-100 [Concomitant]
     Dosage: TRANSDERMAL PATCH (FENTANYL) 1/D
     Route: 062
     Dates: start: 20091001, end: 20091030
  6. NOCTRAN [Concomitant]
     Dosage: MORE THAN 1 YR
     Dates: end: 20091030

REACTIONS (3)
  - HAEMATURIA [None]
  - MALIGNANT NEOPLASM PROGRESSION [None]
  - PULMONARY EMBOLISM [None]
